FAERS Safety Report 24278469 (Version 1)
Quarter: 2024Q3

REPORT INFORMATION
  Report Type: Spontaneous
  Country: US (occurrence: None)
  Receive Date: 20240830
  Receipt Date: 20240830
  Transmission Date: 20241017
  Serious: Yes (Death)
  Sender: Public
  Company Number: None

PATIENT
  Age: 71 Year
  Sex: Male
  Weight: 107.95 kg

DRUGS (1)
  1. LEXISCAN [Suspect]
     Active Substance: REGADENOSON
     Indication: Cardiac stress test
     Dosage: FREQUENCY : ONCE;?
     Route: 042
     Dates: start: 20231010, end: 20231010

REACTIONS (2)
  - Unresponsive to stimuli [None]
  - Fall [None]

NARRATIVE: CASE EVENT DATE: 20231010
